FAERS Safety Report 7718948-9 (Version None)
Quarter: 2011Q3

REPORT INFORMATION
  Report Type: 
  Country: None (occurrence: None)
  Receive Date: 20110830
  Receipt Date: 20110816
  Transmission Date: 20111222
  Serious: Yes (Hospitalization)
  Sender: FDA-Public Use
  Company Number: US-GLAXOSMITHKLINE-A0911675A

PATIENT
  Age: 71 Year
  Sex: Male
  Weight: 113.6 kg

DRUGS (9)
  1. AMARYL [Concomitant]
  2. AVANDIA [Suspect]
     Indication: DIABETES MELLITUS
     Dosage: 8MG PER DAY
     Route: 048
     Dates: end: 20090401
  3. AVANDAMET [Suspect]
     Indication: DIABETES MELLITUS
     Dosage: 1TAB PER DAY
     Route: 048
  4. PROTONIX [Concomitant]
  5. VYTORIN [Concomitant]
  6. GLUCOPHAGE [Concomitant]
  7. ZOCOR [Concomitant]
  8. TOPROL-XL [Concomitant]
  9. LISINOPRIL [Concomitant]

REACTIONS (3)
  - CORONARY ARTERY DISEASE [None]
  - MYOCARDIAL ISCHAEMIA [None]
  - ACUTE MYOCARDIAL INFARCTION [None]
